FAERS Safety Report 9059467 (Version 1)
Quarter: 2013Q1

REPORT INFORMATION
  Report Type: Spontaneous
  Country: US (occurrence: US)
  Receive Date: 20130211
  Receipt Date: 20130211
  Transmission Date: 20140127
  Serious: Yes (Hospitalization)
  Sender: FDA-Public Use
  Company Number: GXBR2012US002478

PATIENT
  Age: 44 None
  Sex: Female
  Weight: 58.5 kg

DRUGS (3)
  1. LEVONORGESTREL AND ETHINYL ESTRADIOL [Suspect]
     Indication: CONTRACEPTION
     Dosage: UNK DF, UNK
     Route: 048
     Dates: start: 201210, end: 20121118
  2. SYMBICORT [Concomitant]
     Dosage: BUDESONIDE/FORMOTEROL 160/4.5 MCG/INH BID
  3. SYNTHROID [Concomitant]
     Dosage: 75 UG, QD

REACTIONS (13)
  - Dehydration [Unknown]
  - Nausea [Recovered/Resolved]
  - Abdominal tenderness [Unknown]
  - Chills [Recovered/Resolved]
  - Headache [Unknown]
  - Dysuria [Recovering/Resolving]
  - Pollakiuria [Recovering/Resolving]
  - Constipation [Recovered/Resolved]
  - Blood glucose decreased [Recovered/Resolved]
  - Presyncope [Recovered/Resolved]
  - Dizziness [Unknown]
  - Tachycardia [Unknown]
  - Anxiety [Recovering/Resolving]
